FAERS Safety Report 9578623 (Version 1)
Quarter: 2013Q4

REPORT INFORMATION
  Report Type: Spontaneous
  Country: US (occurrence: US)
  Receive Date: 20131001
  Receipt Date: 20131001
  Transmission Date: 20140711
  Serious: No
  Sender: FDA-Public Use
  Company Number: US-AMGEN-USASP2013014128

PATIENT
  Age: 42 Year
  Sex: Female
  Weight: 120.64 kg

DRUGS (21)
  1. ENBREL [Suspect]
     Indication: RHEUMATOID ARTHRITIS
     Dosage: 50 MG, QWK
     Route: 058
  2. VITAMIN D3 [Concomitant]
     Dosage: 50000 UNIT, UNK
  3. ALBUTEROL                          /00139501/ [Concomitant]
     Dosage: 0.083 %, UNK
  4. ALENDRONATE [Concomitant]
     Dosage: 70 MG, UNK
  5. ZYFLO [Concomitant]
     Dosage: 600 MG, UNK
  6. PROAIR HFA [Concomitant]
     Dosage: UNK
  7. ADVAIR [Concomitant]
     Dosage: 500/50
  8. PATADAY [Concomitant]
     Dosage: 0.2 %, UNK
  9. MUCINEX [Concomitant]
     Dosage: 600 MG, UNK
  10. NASONEX [Concomitant]
     Dosage: 50 MCG/AC UNK
  11. ABILIFY [Concomitant]
     Dosage: 5 MG, UNK
  12. SPIRIVA HANDIHALER [Concomitant]
     Dosage: UNK
  13. LORATADINE [Concomitant]
     Dosage: 10 MG, UNK
  14. QVAR [Concomitant]
     Dosage: 80 MUG, UNK
  15. ASTELIN                            /00085801/ [Concomitant]
     Dosage: 137 MUG, UNK
  16. VESICARE [Concomitant]
     Dosage: 10 MG, UNK
  17. COLACE [Concomitant]
     Dosage: 100 MG, UNK
  18. PRILOSEC                           /00661201/ [Concomitant]
     Dosage: 20 MG, UNK
  19. TRAZODONE [Concomitant]
     Dosage: 100 MG, UNK
  20. AMBIEN CR [Concomitant]
     Dosage: 12.5 MG, UNK
  21. TOPAMAX [Concomitant]
     Dosage: 25 MG, UNK

REACTIONS (3)
  - Drug ineffective [Unknown]
  - Pain [Unknown]
  - Rheumatoid arthritis [Unknown]
